FAERS Safety Report 5689524-7 (Version None)
Quarter: 2008Q1

REPORT INFORMATION
  Report Type: 
  Country: None (occurrence: None)
  Receive Date: 20080331
  Receipt Date: 20080319
  Transmission Date: 20080703
  Serious: Yes (Other)
  Sender: FDA-Public Use
  Company Number: US-PFIZER INC-2008026100

PATIENT
  Sex: Female
  Weight: 68 kg

DRUGS (7)
  1. LYRICA [Suspect]
     Indication: FIBROMYALGIA
  2. DILAUDID [Concomitant]
  3. CRESTOR [Concomitant]
  4. ATIVAN [Concomitant]
  5. MORPHINE [Concomitant]
  6. CYMBALTA [Concomitant]
  7. TYLENOL (CAPLET) [Concomitant]

REACTIONS (2)
  - EYELID OEDEMA [None]
  - SWELLING FACE [None]
